FAERS Safety Report 24030489 (Version 2)
Quarter: 2024Q3

REPORT INFORMATION
  Report Type: Spontaneous
  Country: US (occurrence: US)
  Receive Date: 20240628
  Receipt Date: 20240712
  Transmission Date: 20241017
  Serious: Yes (Other)
  Sender: DOMPE FARMACEUTICI
  Company Number: US-FARMAPROD-202406-2317

PATIENT
  Age: 78 Year
  Sex: Female
  Weight: 57 kg

DRUGS (38)
  1. OXERVATE [Suspect]
     Active Substance: CENEGERMIN-BKBJ
     Indication: Hypoaesthesia eye
     Route: 047
     Dates: start: 20240607
  2. OXERVATE [Suspect]
     Active Substance: CENEGERMIN-BKBJ
  3. SYSTANE (HYPROMELLOSE 2910 (4000 MPA.S)) [Concomitant]
     Active Substance: HYPROMELLOSE 2910 (4000 MPA.S)
     Dosage: 0,3 %-0,4%
  4. SYSTANE (HYPROMELLOSE 2910 (4000 MPA.S)) [Concomitant]
     Active Substance: HYPROMELLOSE 2910 (4000 MPA.S)
     Dosage: 94%-3%
     Dates: start: 20231219
  5. MIEBO [Concomitant]
     Active Substance: PERFLUOROHEXYLOCTANE
     Dates: start: 20240319
  6. XDEMVY [Concomitant]
     Active Substance: LOTILANER
  7. VITAMIN E [Concomitant]
     Active Substance: .ALPHA.-TOCOPHEROL
  8. CALCIUM\CHOLECALCIFEROL [Concomitant]
     Active Substance: CALCIUM\CHOLECALCIFEROL
     Dosage: 600-600MG-10
  9. MAGNESIUM [Concomitant]
     Active Substance: MAGNESIUM
  10. PROBIOTIC PEARLS WOMEN^S [Concomitant]
  11. VITAMINS [Concomitant]
     Active Substance: VITAMINS
  12. VITAMIN D3 [Concomitant]
     Active Substance: CHOLECALCIFEROL
  13. ALENDRONATE SODIUM [Concomitant]
     Active Substance: ALENDRONATE SODIUM
  14. OMEPRAZOLE [Concomitant]
     Active Substance: OMEPRAZOLE
  15. GABAPENTIN [Concomitant]
     Active Substance: GABAPENTIN
  16. CARBIDOPA\ENTACAPONE\LEVODOPA [Concomitant]
     Active Substance: CARBIDOPA\ENTACAPONE\LEVODOPA
  17. BUSPIRONE HCL [Concomitant]
     Active Substance: BUSPIRONE HYDROCHLORIDE
  18. ATORVASTATIN CALCIUM [Concomitant]
     Active Substance: ATORVASTATIN CALCIUM
  19. ACYCLOVIR [Concomitant]
     Active Substance: ACYCLOVIR
  20. TOLTERODINE TARTRATE [Concomitant]
     Active Substance: TOLTERODINE TARTRATE
  21. FLUOROMETHOLONE [Concomitant]
     Active Substance: FLUOROMETHOLONE
  22. REFRESH TEARS [Concomitant]
     Active Substance: CARBOXYMETHYLCELLULOSE SODIUM
  23. EYSUVIS [Concomitant]
     Active Substance: LOTEPREDNOL ETABONATE
  24. CETIRIZINE [Concomitant]
     Active Substance: CETIRIZINE HYDROCHLORIDE
  25. FOLIC ACID [Concomitant]
     Active Substance: FOLIC ACID
  26. MELATONIN [Concomitant]
     Active Substance: MELATONIN
  27. POTASSIUM [Concomitant]
     Active Substance: POTASSIUM
  28. PROBIOTICS NOS [Concomitant]
     Active Substance: PROBIOTICS NOS
  29. ACETAMINOPHEN [Concomitant]
     Active Substance: ACETAMINOPHEN
  30. LOTEMAX [Concomitant]
     Active Substance: LOTEPREDNOL ETABONATE
  31. OMEGA 3 [Concomitant]
     Active Substance: CAPSAICIN
  32. FLAREX [Concomitant]
     Active Substance: FLUOROMETHOLONE ACETATE
     Dates: start: 20240322
  33. RYTARY [Concomitant]
     Active Substance: CARBIDOPA\LEVODOPA
  34. ATORVALIQ [Concomitant]
     Active Substance: ATORVASTATIN CALCIUM TRIHYDRATE
  35. MYRBETRIQ [Concomitant]
     Active Substance: MIRABEGRON
  36. ARTIFICIAL TEARS [Concomitant]
     Dates: start: 20240319
  37. PROLENSA [Concomitant]
     Active Substance: BROMFENAC SODIUM
     Dates: start: 20240702
  38. DUREZOL [Concomitant]
     Active Substance: DIFLUPREDNATE

REACTIONS (3)
  - Retinal oedema [Not Recovered/Not Resolved]
  - Eye pain [Not Recovered/Not Resolved]
  - Vision blurred [Unknown]
